FAERS Safety Report 18574220 (Version 1)
Quarter: 2020Q4

REPORT INFORMATION
  Report Type: Report from Study
  Country: NL (occurrence: NL)
  Receive Date: 20201203
  Receipt Date: 20201203
  Transmission Date: 20210114
  Serious: Yes (Hospitalization)
  Sender: FDA-Public Use
  Company Number: NL-TEVA-2020-NL-1854348

PATIENT
  Age: 59 Year
  Sex: Female

DRUGS (14)
  1. BUMETANIDE TABLET 1MG / BUMETANIDUM TABLET 1MG - NON-CURRENT DRUG [Suspect]
     Active Substance: BUMETANIDE
     Dosage: 1 DF, THERAPY START DATE AND END DATE : ASKU
  2. BUMETANIDE TABLET 1MG / BUMETANIDE A TABLET 1MG - NON-CURRENT DRUG [Concomitant]
     Dosage: THERAPY END DATE : ASKU
     Dates: start: 20050307
  3. ATENOLOL TABLET 100MG / ATENOLOL CF TABLET 100MG - NON-CURRENT DRUG [Suspect]
     Active Substance: ATENOLOL
     Dosage: 1 DF, THERAPY START DATE AND END DATE : ASKU
     Route: 065
  4. SPIRONOLACTON TABLET 25MG / SPIRONOLACTON A TABLET  25MG - NON-CURRENT [Concomitant]
     Dosage: THERAPY END DATE : ASKU
     Dates: start: 20050912
  5. LOSARTAN TABLET FO 100MG / COZAAR TABLET FILMOMHULD 100MG [Concomitant]
     Dosage: THERAPY END DATE : ASKU
     Dates: start: 20050420
  6. CALCIUMCARB/COLECALC KAUWTB 1,25G/400IE (500MG CA) / CALCI CHEW D3 KAU [Concomitant]
     Dosage: THERAPY END DATE : ASKU
     Dates: start: 20050420
  7. DESLORATADINE TABLET 5MG / AERIUS TABLET FILMOMHULD 5MG [Concomitant]
     Dosage: THERAPY END DATE : ASKU
     Dates: start: 20050912
  8. FUROSEMIDE CAPSULE MGA 60MG / LASIX RETARD CAPSULE MGA 60MG [Suspect]
     Active Substance: FUROSEMIDE
     Dosage: THERAPY START DATE AND END DATE : ASKU
     Route: 065
  9. ATENOLOL TABLET 100MG / ATENOLOL CF TABLET 100MG - NON-CURRENT DRUG [Suspect]
     Active Substance: ATENOLOL
     Dosage: THERAPY END DATE : ASKU
     Route: 065
     Dates: start: 20050420
  10. DOXYCYCLINE DISPERTABLET 100MG / DOXYCYCLINE A DISPER TABLET 100MG - N [Concomitant]
     Dosage: THERAPY END DATE : ASKU
     Dates: start: 20050307
  11. ACETYLSALICYLZUUR DISPERTABLET 30MG / ACETYLSALICYLZUUR NEURO CF DISP [Concomitant]
     Dosage: THERAPY END DATE : ASKU
     Dates: start: 20050420
  12. SALBUTAMOL/IPRATROPIUM AEROSOL 120/20UG/DO - NON-CURRENT DRUG / COMBIV [Concomitant]
     Dosage: AEROSOL, THERAPY END DATE : ASKU
     Dates: start: 20050307
  13. CODEINE TABLET 10MG / CODEINEFOSFAAT A TABLET 10MG - NON-CURRENT DRUG [Concomitant]
     Dosage: THERAPY END DATE : ASKU
     Dates: start: 20050307
  14. FUROSEMIDE CAPSULE MGA 60MG / LASIX RETARD CAPSULE MGA 60MG [Concomitant]
     Dosage: THERAPY END DATE : ASKU
     Dates: start: 20050127

REACTIONS (3)
  - Adverse event [Recovered/Resolved]
  - Pneumonia aspiration [Recovered/Resolved]
  - Cardiac failure congestive [Recovered/Resolved]
